FAERS Safety Report 20133489 (Version 3)
Quarter: 2022Q2

REPORT INFORMATION
  Report Type: Report from Study
  Country: CA (occurrence: CA)
  Receive Date: 20211201
  Receipt Date: 20220521
  Transmission Date: 20220721
  Serious: Yes (Other)
  Sender: FDA-Public Use
  Company Number: CA-JNJFOC-20211151707

PATIENT
  Age: 46 Year
  Sex: Male

DRUGS (1)
  1. SIMPONI [Suspect]
     Active Substance: GOLIMUMAB
     Indication: Psoriatic arthropathy
     Route: 058
     Dates: start: 20211020

REACTIONS (6)
  - Systemic infection [Unknown]
  - Kidney infection [Unknown]
  - Psoriatic arthropathy [Unknown]
  - Upper limb fracture [Unknown]
  - Cystitis [Unknown]
  - Mental disorder [Unknown]

NARRATIVE: CASE EVENT DATE: 20211101
